FAERS Safety Report 5017808-4 (Version None)
Quarter: 2006Q2

REPORT INFORMATION
  Report Type: 
  Country: None (occurrence: None)
  Receive Date: 20060530
  Receipt Date: 20060515
  Transmission Date: 20061013
  Serious: Yes (Hospitalization, Other)
  Sender: FDA-Public Use
  Company Number: 2005130955

PATIENT
  Age: 53 Year
  Sex: Male
  Weight: 68.0396 kg

DRUGS (1)
  1. CELEBREX [Suspect]
     Indication: PAIN
     Dosage: 100MG-200MG (2 IN 1 D)
     Dates: start: 19991106

REACTIONS (1)
  - MYOCARDIAL INFARCTION [None]
